FAERS Safety Report 10128881 (Version 3)
Quarter: 2014Q2

REPORT INFORMATION
  Report Type: Report from Study
  Country: US (occurrence: US)
  Receive Date: 20140428
  Receipt Date: 20140609
  Transmission Date: 20141212
  Serious: No
  Sender: FDA-Public Use
  Company Number: PHEH2014US001998

PATIENT
  Age: 75 Year
  Sex: Female

DRUGS (13)
  1. TASIGNA [Suspect]
     Indication: CHRONIC MYELOID LEUKAEMIA
     Dosage: 2 DF, BID
     Route: 048
     Dates: start: 201301
  2. TASIGNA [Suspect]
     Dosage: 300 MG, BID
     Route: 048
     Dates: start: 20130711
  3. CALCIUM CARBONATE [Concomitant]
     Dosage: UNK UKN, UNK
  4. FISH OIL [Concomitant]
     Dosage: UNK UKN, UNK
  5. MAG-OX [Concomitant]
     Dosage: UNK UKN, UNK
  6. VITAMIN D [Concomitant]
     Dosage: UNK UKN, UNK
  7. FLUOCINONIDE [Concomitant]
     Dosage: UNK UKN, UNK
  8. CITALOPRAM [Concomitant]
     Dosage: UNK UKN, UNK
  9. LOSARTAN [Concomitant]
     Dosage: UNK UKN, UNK
  10. CIPROFLOXACIN [Concomitant]
     Dosage: UNK UKN, UNK
  11. GABAPENTIN [Concomitant]
     Dosage: UNK UKN, UNK
  12. METOPROLOL [Concomitant]
     Dosage: UNK UKN, UNK
  13. GEMFIBROZIL [Concomitant]
     Dosage: UNK UKN, UNK

REACTIONS (5)
  - Pain in jaw [Unknown]
  - Accidental exposure to product [Unknown]
  - Product physical issue [Unknown]
  - Alopecia [Unknown]
  - Haematoma [Unknown]
